FAERS Safety Report 18738744 (Version 1)
Quarter: 2021Q1

REPORT INFORMATION
  Report Type: Spontaneous
  Country: GB (occurrence: GB)
  Receive Date: 20210114
  Receipt Date: 20210114
  Transmission Date: 20210419
  Serious: Yes (Other)
  Sender: FDA-Public Use
  Company Number: GB-MERZ PHARMACEUTICALS GMBH-21-00007

PATIENT
  Age: 40 Year
  Sex: Female
  Weight: 53.06 kg

DRUGS (2)
  1. BOCOUTURE [Suspect]
     Active Substance: BOTULINUM TOXIN TYPE A
     Indication: SKIN WRINKLING
  2. BOCOUTURE [Suspect]
     Active Substance: BOTULINUM TOXIN TYPE A
     Indication: SKIN COSMETIC PROCEDURE
     Route: 030
     Dates: start: 20201212, end: 20201212

REACTIONS (2)
  - Palpitations [Unknown]
  - Acute cardiac event [Unknown]

NARRATIVE: CASE EVENT DATE: 20201214
